FAERS Safety Report 5167528-0 (Version None)
Quarter: 2006Q4

REPORT INFORMATION
  Report Type: 
  Country: None (occurrence: None)
  Receive Date: 20060830
  Receipt Date: 20060628
  Transmission Date: 20070319
  Serious: Yes (Other)
  Sender: FDA-Public Use
  Company Number: 226313

PATIENT
  Age: 61 Year
  Sex: Female

DRUGS (14)
  1. XOLAIR [Suspect]
     Indication: ASTHMA
     Dosage: 300 MG, Q2W, SUBCUTANEOUS
     Route: 058
     Dates: start: 20040701
  2. ADVAIR DISKUS 100/50 [Concomitant]
  3. MEDROL [Concomitant]
  4. XOPENEX [Concomitant]
  5. ATROVENT [Concomitant]
  6. SINGULAIR [Concomitant]
  7. ALLEGRA [Concomitant]
  8. MENEST [Concomitant]
  9. NEXIUM [Concomitant]
  10. REGLAN [Concomitant]
  11. PRECOSE [Concomitant]
  12. MIRALAX [Concomitant]
  13. CELEBREX [Concomitant]
  14. ZELNORM [Concomitant]

REACTIONS (1)
  - LUNG NEOPLASM MALIGNANT [None]
